FAERS Safety Report 9747998 (Version 3)
Quarter: 2013Q4

REPORT INFORMATION
  Report Type: Spontaneous
  Country: US (occurrence: US)
  Receive Date: 20131212
  Receipt Date: 20131212
  Transmission Date: 20140711
  Serious: Yes (Other)
  Sender: FDA-Public Use
  Company Number: US-TEVA-388839USA

PATIENT
  Age: 38 Year
  Sex: Female
  Weight: 73.55 kg

DRUGS (4)
  1. PARAGARD 380A [Suspect]
     Indication: CONTRACEPTION
     Route: 015
     Dates: end: 20130225
  2. DOXYCLINE [Concomitant]
  3. HYDROCHLOROTHIAZIDE [Concomitant]
  4. ZOLPIDEM ER [Concomitant]

REACTIONS (2)
  - Medical device complication [Recovered/Resolved]
  - Embedded device [Recovered/Resolved]
